FAERS Safety Report 5191885-2 (Version None)
Quarter: 2006Q4

REPORT INFORMATION
  Report Type: 
  Country: None (occurrence: None)
  Receive Date: 20061220
  Receipt Date: 20061207
  Transmission Date: 20070319
  Serious: Yes (Hospitalization)
  Sender: FDA-Public Use
  Company Number: 2006BI017849

PATIENT
  Sex: Female

DRUGS (1)
  1. AVONEX [Suspect]
     Indication: DRUG USE FOR UNKNOWN INDICATION
     Dosage: IM
     Route: 030
     Dates: start: 20061027

REACTIONS (5)
  - AMNESIA [None]
  - BALANCE DISORDER [None]
  - DISORIENTATION [None]
  - GAIT DISTURBANCE [None]
  - INJECTION SITE HAEMORRHAGE [None]
